FAERS Safety Report 4588889-7 (Version None)
Quarter: 2005Q1

REPORT INFORMATION
  Report Type: 
  Country: None (occurrence: None)
  Receive Date: 20050216
  Receipt Date: 20050203
  Transmission Date: 20050727
  Serious: Yes (Other)
  Sender: FDA-Public Use
  Company Number: 2005026077

PATIENT
  Sex: Male

DRUGS (5)
  1. ZOLOFT [Suspect]
     Indication: ILL-DEFINED DISORDER
     Dosage: 50 MG
  2. ALPRAZOLAM [Concomitant]
  3. ATORVASTATIN (ATORVASTATIN) [Concomitant]
  4. RAMIPRIL [Concomitant]
  5. PAROXETINE HCL [Concomitant]

REACTIONS (1)
  - SEROTONIN SYNDROME [None]
